FAERS Safety Report 13373214 (Version 2)
Quarter: 2017Q2

REPORT INFORMATION
  Report Type: Report from Study
  Country: None (occurrence: US)
  Receive Date: 20170327
  Receipt Date: 20170412
  Transmission Date: 20170830
  Serious: Yes (Hospitalization)
  Sender: FDA-Public Use
  Company Number: US-ABBVIE-17K-163-1922236-00

PATIENT
  Age: 25 Year
  Sex: Female
  Weight: 106.69 kg

DRUGS (10)
  1. HUMIRA [Suspect]
     Active Substance: ADALIMUMAB
     Indication: COLITIS ULCERATIVE
     Route: 058
     Dates: start: 2011, end: 2014
  2. FOLIC ACID. [Concomitant]
     Active Substance: FOLIC ACID
     Indication: VITAMIN SUPPLEMENTATION
  3. HUMIRA [Suspect]
     Active Substance: ADALIMUMAB
     Dosage: DAY 1 LOADING DOSE
     Route: 058
     Dates: start: 20170323, end: 20170323
  4. AMITRIPTYLINE [Concomitant]
     Active Substance: AMITRIPTYLINE
     Indication: PRODUCT USED FOR UNKNOWN INDICATION
  5. METHOTREXATE. [Concomitant]
     Active Substance: METHOTREXATE
     Indication: COLITIS
  6. HUMIRA [Suspect]
     Active Substance: ADALIMUMAB
     Indication: CROHN^S DISEASE
     Route: 058
     Dates: end: 201606
  7. LIALDA [Concomitant]
     Active Substance: MESALAMINE
     Indication: COLITIS
  8. HUMIRA [Suspect]
     Active Substance: ADALIMUMAB
     Dosage: DAY 15 LOADING DOSE
     Route: 058
     Dates: start: 20170406, end: 20170406
  9. MESALAMINE. [Concomitant]
     Active Substance: MESALAMINE
     Indication: COLITIS
  10. HUMIRA [Suspect]
     Active Substance: ADALIMUMAB
     Indication: COLITIS
     Route: 058
     Dates: start: 2009

REACTIONS (8)
  - Weight increased [Unknown]
  - Thinking abnormal [Unknown]
  - Defaecation urgency [Recovering/Resolving]
  - Oligomenorrhoea [Recovered/Resolved]
  - Food poisoning [Not Recovered/Not Resolved]
  - Injection site urticaria [Recovered/Resolved]
  - Crohn^s disease [Recovering/Resolving]
  - Injection site pain [Recovered/Resolved]

NARRATIVE: CASE EVENT DATE: 20160406
